FAERS Safety Report 23750471 (Version 1)
Quarter: 2024Q2

REPORT INFORMATION
  Report Type: Spontaneous
  Country: US (occurrence: None)
  Receive Date: 20240417
  Receipt Date: 20240417
  Transmission Date: 20240715
  Serious: Yes (Other)
  Sender: FDA-Public Use
  Company Number: US-Encube-000672

PATIENT
  Age: 38 Year
  Sex: Female

DRUGS (5)
  1. LIDOCAINE [Suspect]
     Active Substance: LIDOCAINE
     Indication: Postoperative analgesia
     Dosage: PERIPHERAL LIDOCAINE INFUSION 0.5%, AUTO BOLUS
  2. EPINEPHRINE [Concomitant]
     Active Substance: EPINEPHRINE
     Dosage: 0.08 MICRO GRAM/KG/MIN
  3. NITRIC OXIDE [Concomitant]
     Active Substance: NITRIC OXIDE
     Dosage: 20 PPM
  4. LIDOCAINE [Suspect]
     Active Substance: LIDOCAINE
     Indication: Postoperative analgesia
     Dosage: PERIPHERAL LIDOCAINE 0.5% INFUSION , DEMAND BOLUS
  5. EPINEPHRINE [Concomitant]
     Active Substance: EPINEPHRINE
     Dosage: 0.01 MICRO GRAM/KG/MIN

REACTIONS (8)
  - Local anaesthetic systemic toxicity [Recovered/Resolved]
  - Hemiparesis [Recovered/Resolved]
  - Facial paralysis [Recovered/Resolved]
  - Tinnitus [Recovered/Resolved]
  - Hypoaesthesia oral [Recovered/Resolved]
  - Dysgeusia [Recovered/Resolved]
  - Off label use [Unknown]
  - Right ventricular dysfunction [Recovered/Resolved]
